FAERS Safety Report 15303186 (Version 1)
Quarter: 2018Q3

REPORT INFORMATION
  Report Type: Spontaneous
  Country: US (occurrence: US)
  Receive Date: 20180821
  Receipt Date: 20180821
  Transmission Date: 20181010
  Serious: No
  Sender: FDA-Public Use
  Company Number: US-AMGEN INC.-USASP2018097628

PATIENT
  Age: 65 Year
  Sex: Female

DRUGS (3)
  1. NAMENDA [Concomitant]
     Active Substance: MEMANTINE HYDROCHLORIDE
     Dosage: 10 MG, BID THEN CUT FREQUENCY TO ONCE DAILY
  2. TOPAMAX [Concomitant]
     Active Substance: TOPIRAMATE
     Dosage: 50 MG, BID THEN CUT FREQUENCY TO ONCE DAILY
  3. AIMOVIG [Suspect]
     Active Substance: ERENUMAB-AOOE
     Indication: MIGRAINE PROPHYLAXIS
     Dosage: 70 MG, QMO
     Route: 065
     Dates: start: 20180626

REACTIONS (3)
  - Headache [Unknown]
  - Sluggishness [Unknown]
  - Affect lability [Unknown]

NARRATIVE: CASE EVENT DATE: 201807
